FAERS Safety Report 6656378-1 (Version None)
Quarter: 2010Q1

REPORT INFORMATION
  Report Type: 
  Country: None (occurrence: None)
  Receive Date: 20100317
  Receipt Date: 20091203
  Transmission Date: 20100710
  Serious: No
  Sender: FDA-Public Use
  Company Number: DSA_42129_2009

PATIENT
  Sex: Male

DRUGS (2)
  1. XENAZINE [Suspect]
     Indication: HICCUPS
     Dosage: (1/2 25 MG TABLET TID ORAL), (DF ORAL)
     Route: 048
     Dates: start: 20090901, end: 20090101
  2. XENAZINE [Suspect]
     Indication: HICCUPS
     Dosage: (1/2 25 MG TABLET TID ORAL), (DF ORAL)
     Route: 048
     Dates: start: 20090101

REACTIONS (3)
  - DRUG INEFFECTIVE FOR UNAPPROVED INDICATION [None]
  - FATIGUE [None]
  - HICCUPS [None]
